FAERS Safety Report 20676751 (Version 2)
Quarter: 2022Q2

REPORT INFORMATION
  Report Type: Spontaneous
  Country: US (occurrence: US)
  Receive Date: 20220406
  Receipt Date: 20220412
  Transmission Date: 20220721
  Serious: No
  Sender: FDA-Public Use
  Company Number: US-AMGEN-USASP2022055095

PATIENT
  Age: 68 Year
  Sex: Female

DRUGS (2)
  1. EVENITY [Suspect]
     Active Substance: ROMOSOZUMAB-AQQG
     Indication: Osteoporosis postmenopausal
     Dosage: UNK
     Route: 065
     Dates: start: 202101
  2. ORENCIA [Concomitant]
     Active Substance: ABATACEPT
     Dosage: UNK
     Route: 065

REACTIONS (3)
  - Injection site urticaria [Recovered/Resolved]
  - Back disorder [Unknown]
  - Neck pain [Unknown]

NARRATIVE: CASE EVENT DATE: 20220201
